FAERS Safety Report 18764828 (Version 1)
Quarter: 2021Q1

REPORT INFORMATION
  Report Type: Spontaneous
  Country: DE (occurrence: DE)
  Receive Date: 20210120
  Receipt Date: 20210120
  Transmission Date: 20210419
  Serious: Yes (Hospitalization)
  Sender: FDA-Public Use
  Company Number: DE-MYLANLABS-2021M1003269

PATIENT
  Age: 59 Year
  Sex: Female

DRUGS (13)
  1. KALIUM                             /00031401/ [Concomitant]
     Active Substance: POTASSIUM CHLORIDE
     Dosage: UNK UNK, QD  1?0?0?0, BRAUSETABLETTEN
  2. BERODUAL [Concomitant]
     Active Substance: FENOTEROL HYDROBROMIDE\IPRATROPIUM BROMIDE
     Dosage: 50|20 ?G
     Route: 055
  3. BRETARIS GENUAIR [Concomitant]
     Active Substance: ACLIDINIUM BROMIDE
     Dosage: 322 MICROGRAM, BID 322 ?G, 1?0?1?0, INHALATIONSPULVER
     Route: 055
  4. PREDNISOLONE. [Suspect]
     Active Substance: PREDNISOLONE
     Indication: PRODUCT USED FOR UNKNOWN INDICATION
     Dosage: 20 MILLIGRAM  20 MG, 1.5?0?0?0, TABLETTEN
  5. METAMIZOL                          /06276701/ [Concomitant]
     Active Substance: METAMIZOLE
     Dosage: 500 MILLIGRAM 500 MG, BEDARF, TROPFEN
  6. BUDESONIDE. [Suspect]
     Active Substance: BUDESONIDE
     Indication: PRODUCT USED FOR UNKNOWN INDICATION
     Dosage: 200 MICROGRAM, BID 200 ?G, 1?0?1?0, INHALATIONSPULVER
     Route: 055
  7. PREGABALIN. [Concomitant]
     Active Substance: PREGABALIN
     Dosage: 75 MILLIGRAM, BID  75 MG, 1?0?1?0, KAPSELN
  8. PANTOPRAZOL                        /01263201/ [Concomitant]
     Active Substance: PANTOPRAZOLE
     Dosage: 20 MILLIGRAM, BID   20 MG, 1?0?1?0, TABLETTEN
  9. OXYCODONE [Concomitant]
     Active Substance: OXYCODONE
     Dosage: 10 MILLIGRAM, BID 10 MG, 1?0?1?0, KAPSELN
  10. FORMOTEROL [Concomitant]
     Active Substance: FORMOTEROL
     Dosage: 12 MICROGRAM, BID  12 ?G, 1?0?1?0, INHALATIONSKAPSELN
     Route: 055
  11. DAXAS [Concomitant]
     Active Substance: ROFLUMILAST
     Dosage: 500 MICROGRAM, QD  500 ?G, 0?0?1?0, TABLETTEN
  12. ATORVASTATIN [Concomitant]
     Active Substance: ATORVASTATIN
     Dosage: 20 MILLIGRAM, QD 20 MG, 0?0?1?0, TABLETTEN
  13. ASPIRIN. [Concomitant]
     Active Substance: ASPIRIN
     Dosage: 100 MILLIGRAM, QD 100 MG, 0?1?0?0, TABLETTEN

REACTIONS (1)
  - Dyspnoea [Unknown]

NARRATIVE: CASE EVENT DATE: 20201103
